FAERS Safety Report 8488580-0 (Version None)
Quarter: 2012Q2

REPORT INFORMATION
  Report Type: 
  Country: None (occurrence: None)
  Receive Date: 20120626
  Receipt Date: 20120611
  Transmission Date: 20120825
  Serious: Yes (Hospitalization)
  Sender: FDA-Public Use
  Company Number: 2012MA007196

PATIENT
  Age: 62 Year
  Sex: Male

DRUGS (5)
  1. PREDNISONE TAB [Concomitant]
  2. DILTIAZEM HYDROCHLORIDE [Suspect]
     Indication: PRODUCT USED FOR UNKNOWN INDICATION
     Dosage: 240 MG;QD;
  3. TACROLIMUS [Suspect]
     Indication: RENAL TRANSPLANT
  4. ENALAPRIL MALEATE [Suspect]
     Indication: PRODUCT USED FOR UNKNOWN INDICATION
     Dosage: 2.5 MG;QD;
  5. RANOLAZINE [Suspect]
     Indication: MYOCARDIAL ISCHAEMIA
     Dosage: 1000 MG;BID;

REACTIONS (9)
  - NAUSEA [None]
  - DIZZINESS [None]
  - TOXICITY TO VARIOUS AGENTS [None]
  - MYOCARDIAL ISCHAEMIA [None]
  - DECREASED APPETITE [None]
  - SINUS BRADYCARDIA [None]
  - RENAL FAILURE ACUTE [None]
  - TREMOR [None]
  - POTENTIATING DRUG INTERACTION [None]
